FAERS Safety Report 10502465 (Version 1)
Quarter: 2014Q4

REPORT INFORMATION
  Report Type: Spontaneous
  Country: KR (occurrence: KR)
  Receive Date: 20141007
  Receipt Date: 20141007
  Transmission Date: 20150528
  Serious: Yes (Other)
  Sender: FDA-Public Use
  Company Number: KR-ACTAVIS-2014-21236

PATIENT
  Age: 45 Year
  Sex: Male

DRUGS (3)
  1. 5-FLUOROURACIL                     /00098801/ [Concomitant]
     Active Substance: FLUOROURACIL
     Dosage: 600 MG/M2, CYCLICAL DAY 2
     Route: 065
  2. 5-FLUOROURACIL                     /00098801/ [Concomitant]
     Active Substance: FLUOROURACIL
     Indication: COLON CANCER
     Dosage: 400 MG/M2, CYCLICAL DAY 1
     Route: 065
  3. OXALIPLATIN (UNKNOWN) [Suspect]
     Active Substance: OXALIPLATIN
     Indication: COLON CANCER
     Dosage: 85 MG/M2, CYCLICAL
     Route: 065

REACTIONS (3)
  - Splenomegaly [Recovered/Resolved]
  - Hepatic fibrosis [Unknown]
  - Thrombocytopenia [Recovering/Resolving]
